FAERS Safety Report 6326858-7 (Version None)
Quarter: 2009Q3

REPORT INFORMATION
  Report Type: 
  Country: None (occurrence: None)
  Receive Date: 20090825
  Receipt Date: 20090821
  Transmission Date: 20100115
  Serious: Yes (Hospitalization)
  Sender: FDA-Public Use
  Company Number: GB-ALLERGAN-0910275US

PATIENT
  Age: 56 Year
  Sex: Male

DRUGS (5)
  1. BRIMONIDINE TARTRATE [Suspect]
     Indication: EYE OPERATION
     Dosage: UNK, UNK
     Route: 047
     Dates: start: 20080717, end: 20080901
  2. MINIMS CHLORAMPHENICOL [Suspect]
     Indication: EYE OPERATION
     Dosage: 0.5 %, UNK
     Route: 047
     Dates: start: 20080801, end: 20080901
  3. MINIMS PREDNISOLONE [Suspect]
     Indication: EYE INFLAMMATION
     Dosage: UNK, UNK
     Route: 047
     Dates: start: 20080801, end: 20080901
  4. TOBRADEX [Suspect]
     Indication: EYE INFLAMMATION
     Dosage: UNK, UNK
     Route: 047
     Dates: start: 20080717, end: 20080901
  5. TOBRADEX [Suspect]
     Indication: EYE OPERATION

REACTIONS (2)
  - ASTHMA [None]
  - HYPERSENSITIVITY [None]
